FAERS Safety Report 4289984-2 (Version None)
Quarter: 2004Q1

REPORT INFORMATION
  Report Type: 
  Country: None (occurrence: None)
  Receive Date: 20040209
  Receipt Date: 20040126
  Transmission Date: 20041129
  Serious: Yes (Hospitalization)
  Sender: FDA-Public Use
  Company Number: 01P-163-0110060-00

PATIENT
  Age: 49 Year
  Sex: Male
  Weight: 81.6475 kg

DRUGS (13)
  1. KALETRA [Suspect]
     Indication: ACQUIRED IMMUNODEFICIENCY SYNDROME
     Dosage: 2 CAPSULE, 3 IN 1 D, PER ORAL
     Route: 048
     Dates: start: 20000601
  2. AMPRENAVIR [Suspect]
     Indication: HIV INFECTION
     Dosage: 600 MG, 2 IN 1 D, PER ORAL
     Route: 048
     Dates: start: 20000701
  3. SINEMET [Concomitant]
  4. PROPRANOLOL HYDROCHLORIDE [Concomitant]
  5. PRIMIDONE [Concomitant]
  6. GABAPENTIN [Concomitant]
  7. BACTRIM [Concomitant]
  8. DI-GESIC [Concomitant]
  9. OMEPRAZOLE [Concomitant]
  10. ADROGEL [Concomitant]
  11. CRAISOPRODOL [Concomitant]
  12. LOMOTIL [Concomitant]
  13. DARVOCET [Concomitant]

REACTIONS (23)
  - ABDOMINAL PAIN [None]
  - ANOREXIA [None]
  - ARTHRALGIA [None]
  - BACK PAIN [None]
  - BLOOD CHOLESTEROL INCREASED [None]
  - BLOOD TRIGLYCERIDES INCREASED [None]
  - DYSPNOEA [None]
  - EATING DISORDER [None]
  - HEADACHE [None]
  - HYPOAESTHESIA [None]
  - LIPODYSTROPHY ACQUIRED [None]
  - MUSCLE SPASMS [None]
  - MYALGIA [None]
  - MYOPATHY [None]
  - NECK PAIN [None]
  - NEUROPATHY [None]
  - OEDEMA PERIPHERAL [None]
  - PALPITATIONS [None]
  - PARAESTHESIA [None]
  - PNEUMONIA [None]
  - SEPSIS [None]
  - SINUSITIS [None]
  - TACHYCARDIA [None]
